FAERS Safety Report 13153565 (Version 8)
Quarter: 2017Q3

REPORT INFORMATION
  Report Type: Report from Study
  Country: CN (occurrence: CN)
  Receive Date: 20170126
  Receipt Date: 20170726
  Transmission Date: 20171127
  Serious: Yes (Hospitalization, Other)
  Sender: FDA-Public Use
  Company Number: CN-ASTELLAS-2017JP001210

PATIENT
  Age: 74 Year
  Sex: Male

DRUGS (20)
  1. SODIUM AESCINATE [Concomitant]
     Indication: INTERVERTEBRAL DISC PROTRUSION
     Dosage: UNK UNK, UNKNOWN FREQ.
     Route: 065
     Dates: start: 201612, end: 201612
  2. GUSONGBAO [Concomitant]
     Indication: INTERVERTEBRAL DISC PROTRUSION
     Route: 048
     Dates: start: 20161217, end: 20170113
  3. ZOLEDRONIC ACID [Concomitant]
     Active Substance: ZOLEDRONIC ACID
     Indication: PROSTATE CANCER
     Route: 041
     Dates: start: 20170215, end: 20170215
  4. MANNITOL. [Concomitant]
     Active Substance: MANNITOL
     Indication: INTERVERTEBRAL DISC PROTRUSION
     Dosage: UNK UNK, UNKNOWN FREQ.
     Route: 065
     Dates: start: 201612, end: 201612
  5. TONGSHU [Concomitant]
     Indication: INTERVERTEBRAL DISC PROTRUSION
     Dosage: 0.9 G, THRICE DAILY
     Route: 048
     Dates: start: 20161217, end: 20170113
  6. GINKO BILOBA [Concomitant]
     Active Substance: GINKGO
     Indication: BONE PAIN
     Dosage: UNK UNK, UNKNOWN FREQ.
     Route: 065
     Dates: start: 201701, end: 2017
  7. ENZALUTAMIDE [Suspect]
     Active Substance: ENZALUTAMIDE
     Indication: HORMONE-REFRACTORY PROSTATE CANCER
     Route: 048
     Dates: start: 20160518, end: 20170213
  8. OXAPROZIN. [Concomitant]
     Active Substance: OXAPROZIN
     Route: 048
     Dates: start: 20170310
  9. UNKNOWNDRUG [Concomitant]
     Active Substance: UNSPECIFIED INGREDIENT
     Indication: DIABETES MELLITUS
     Dosage: 0.5 MG, TWICE DAILY
     Route: 048
     Dates: start: 201405, end: 201612
  10. EPERISONE HYDROCHLORIDE [Concomitant]
     Active Substance: EPERISONE HYDROCHLORIDE
     Indication: BONE PAIN
     Dosage: UNK UNK, UNKNOWN FREQ.
     Route: 065
     Dates: start: 2017, end: 2017
  11. PLACEBO [Suspect]
     Active Substance: UNSPECIFIED INGREDIENT
     Indication: HORMONE-REFRACTORY PROSTATE CANCER
     Route: 048
     Dates: start: 20150708, end: 20160312
  12. UNKNOWNDRUG [Concomitant]
     Active Substance: UNSPECIFIED INGREDIENT
     Indication: BONE PAIN
     Dosage: UNK UNK, UNKNOWN FREQ.
     Route: 065
     Dates: start: 2017, end: 2017
  13. TONGSHU [Concomitant]
     Indication: BONE PAIN
     Dosage: UNK UNK, UNKNOWN FREQ.
     Route: 048
     Dates: start: 2017, end: 2017
  14. STRONTIUM [Concomitant]
     Active Substance: STRONTIUM
     Indication: BONE PAIN
     Dosage: 4MCI
     Route: 041
     Dates: start: 20170215, end: 20170215
  15. UNKNOWNDRUG [Concomitant]
     Active Substance: UNSPECIFIED INGREDIENT
     Indication: DIABETES MELLITUS
     Route: 048
     Dates: start: 201405, end: 201612
  16. DANSHEN [Concomitant]
     Active Substance: HERBALS
     Indication: MYOCARDIAL ISCHAEMIA
     Dosage: UNK UNK, UNKNOWN FREQ.
     Route: 065
     Dates: start: 201612, end: 201612
  17. SODIUM AESCINATE [Concomitant]
     Indication: BONE PAIN
     Dosage: UNK UNK, UNKNOWN FREQ.
     Route: 065
     Dates: start: 201701, end: 2017
  18. OXAPROZIN. [Concomitant]
     Active Substance: OXAPROZIN
     Indication: BONE PAIN
     Dosage: UNK, UNKNOWN FREQ.
     Route: 065
     Dates: start: 2017, end: 2017
  19. CODEINE W/IBUPROFEN [Concomitant]
     Active Substance: CODEINE\IBUPROFEN
     Indication: BONE PAIN
     Dosage: UNK UNK, UNKNOWN FREQ.
     Route: 065
     Dates: start: 2017, end: 2017
  20. CALCITRIOL. [Concomitant]
     Active Substance: CALCITRIOL
     Indication: INTERVERTEBRAL DISC PROTRUSION
     Dosage: 0.5 ?G, ONCE DAILY
     Route: 048
     Dates: start: 20161217, end: 20170113

REACTIONS (3)
  - Intervertebral disc protrusion [Recovered/Resolved]
  - Prostate cancer metastatic [Recovered/Resolved]
  - Cerebrovascular insufficiency [Recovered/Resolved]

NARRATIVE: CASE EVENT DATE: 20161206
